FAERS Safety Report 4510726-7 (Version None)
Quarter: 2004Q4

REPORT INFORMATION
  Report Type: 
  Country: None (occurrence: None)
  Receive Date: 20041122
  Receipt Date: 20041108
  Transmission Date: 20050328
  Serious: Yes (Hospitalization)
  Sender: FDA-Public Use
  Company Number: 2004089416

PATIENT
  Age: 48 Year
  Sex: Male

DRUGS (6)
  1. DIFLUCAN [Suspect]
     Indication: MENINGITIS CRYPTOCOCCAL
     Dosage: 400 MG (200 MG, 2 IN 1 D), INTRAVENOUS
     Route: 042
     Dates: start: 20040927
  2. VALPROATE SODIUM [Concomitant]
  3. ZOPIECLONE (ZOPICLONE) [Concomitant]
  4. SODIUM ALGINATE (SODIUM ALGINATE) [Concomitant]
  5. CEFTRIAXONE [Concomitant]
  6. GLYCEROL (FRUCTOSE, GYLCEROL) [Concomitant]

REACTIONS (8)
  - BRAIN OEDEMA [None]
  - CONDITION AGGRAVATED [None]
  - HEADACHE [None]
  - HEARING IMPAIRED [None]
  - HYPOACUSIS [None]
  - MENINGITIS CRYPTOCOCCAL [None]
  - NAUSEA [None]
  - VOMITING [None]
